FAERS Safety Report 20855206 (Version 1)
Quarter: 2022Q2

REPORT INFORMATION
  Report Type: Report from Study
  Country: EG (occurrence: EG)
  Receive Date: 20220520
  Receipt Date: 20220520
  Transmission Date: 20220720
  Serious: Yes (Other)
  Sender: FDA-Public Use
  Company Number: EG-NOVARTISPH-NVSC2022EG113938

PATIENT
  Sex: Female

DRUGS (3)
  1. GLIVEC [Suspect]
     Active Substance: IMATINIB MESYLATE
     Indication: Chronic myeloid leukaemia
     Dosage: 1 DOSAGE FORM, QD (8 OR 9 YEARS AGO)
     Route: 048
  2. GLIVEC [Suspect]
     Active Substance: IMATINIB MESYLATE
     Dosage: 4 DOSAGE FORM (4 CAPS/DAY FROM GLIVEC 100 MG)
     Route: 048
  3. EZAPRIL [Concomitant]
     Indication: Hypertension
     Dosage: 1 DOSAGE FORM, QD (10 YEARS AGO)
     Route: 065

REACTIONS (4)
  - Immunodeficiency [Unknown]
  - Nasopharyngitis [Recovered/Resolved]
  - Vomiting [Recovered/Resolved]
  - Diarrhoea [Recovered/Resolved]
